FAERS Safety Report 24606601 (Version 1)
Quarter: 2024Q4

REPORT INFORMATION
  Report Type: Spontaneous
  Country: CN (occurrence: CN)
  Receive Date: 20241112
  Receipt Date: 20241112
  Transmission Date: 20250114
  Serious: Yes (Other)
  Sender: ACCORD
  Company Number: None

PATIENT
  Age: 59 Year
  Sex: Female
  Weight: 56 kg

DRUGS (2)
  1. TRASTUZUMAB [Suspect]
     Active Substance: TRASTUZUMAB
     Indication: Breast cancer metastatic
     Dosage: 150 MILLIGRAM, Q3W?IV DRIP
     Dates: start: 20240923, end: 20240923
  2. SINTILIMAB [Suspect]
     Active Substance: SINTILIMAB
     Indication: Breast cancer metastatic
     Dosage: 200 MILLIGRAM, Q3W? IV DRIP
     Dates: start: 20240922, end: 20240922

REACTIONS (1)
  - Myelosuppression [Recovering/Resolving]

NARRATIVE: CASE EVENT DATE: 20241014
